FAERS Safety Report 7519178-6 (Version None)
Quarter: 2011Q2

REPORT INFORMATION
  Report Type: 
  Country: None (occurrence: None)
  Receive Date: 20110602
  Receipt Date: 20090719
  Transmission Date: 20111010
  Serious: Yes (Other)
  Sender: FDA-Public Use
  Company Number: US-BAYER-200926736NA

PATIENT
  Age: 71 Year
  Sex: Male
  Weight: 112 kg

DRUGS (17)
  1. COREG [Concomitant]
     Indication: HYPERTENSION
  2. ZESTRIL [Concomitant]
     Indication: HYPERTENSION
     Dosage: 20MG TWICE DAILY
     Route: 048
     Dates: start: 20070207
  3. FUROSEMIDE [Concomitant]
     Indication: FLUID RETENTION
     Dosage: 20MG DAILY
     Dates: start: 20040617
  4. COREG [Concomitant]
     Indication: CARDIAC FAILURE
     Dosage: 40MG DAILY
     Route: 048
     Dates: start: 20070324
  5. TOPROL-XL [Concomitant]
     Indication: HYPERTENSION
     Dosage: UNK
     Route: 048
     Dates: start: 20060828, end: 20070520
  6. ACETYLSALICYLIC ACID SRT [Concomitant]
     Dosage: 81MG DAILY
     Route: 048
  7. AMARYL [Concomitant]
     Dosage: 4MG TWICE DAILY
     Route: 048
  8. COREG [Concomitant]
     Indication: ANGINA PECTORIS
  9. VYTORIN [Concomitant]
     Dosage: 10/40MG DAILY
     Route: 048
  10. GLUCOPHAGE [Concomitant]
     Indication: DIABETES MELLITUS
     Dosage: 1,000MG TWICE DAILY
     Route: 048
     Dates: start: 20030723, end: 20070615
  11. SIMVASTATIN [Concomitant]
     Dosage: 40MG DAILY
     Route: 048
     Dates: start: 20070606
  12. LISINOPRIL [Concomitant]
     Dosage: 20MG TWICE DAILY
     Route: 048
     Dates: start: 20070606
  13. TRASYLOL [Suspect]
     Indication: CORONARY ARTERY BYPASS
     Dosage: . LOADING DOSE OF 300ML, THEN 50ML/HR WAS GIVEN.
     Route: 042
     Dates: start: 20070608, end: 20070608
  14. NITROGLYCERIN [Concomitant]
     Dosage: 67ML TOTAL INFUSED
     Route: 042
     Dates: start: 20070608, end: 20070608
  15. FUROSEMIDE [Concomitant]
     Indication: CARDIAC FAILURE CONGESTIVE
  16. PROCARDIA XL [Concomitant]
     Dosage: UNK
     Route: 048
     Dates: start: 20060612, end: 20090529
  17. RED BLOOD CELLS [Concomitant]
     Dosage: 1 UNIT
     Dates: start: 20070608

REACTIONS (11)
  - PAIN [None]
  - STRESS [None]
  - ANXIETY [None]
  - FEAR [None]
  - RENAL FAILURE ACUTE [None]
  - RENAL IMPAIRMENT [None]
  - INJURY [None]
  - EMOTIONAL DISTRESS [None]
  - LUNG DISORDER [None]
  - CARDIAC FAILURE CONGESTIVE [None]
  - RENAL INJURY [None]
